FAERS Safety Report 9057938 (Version 1)
Quarter: 2013Q1

REPORT INFORMATION
  Report Type: Spontaneous
  Country: GB (occurrence: GB)
  Receive Date: 20130210
  Receipt Date: 20130210
  Transmission Date: 20140127
  Serious: Yes (Life-Threatening, Other)
  Sender: FDA-Public Use
  Company Number: GB-TEVA-383437ISR

PATIENT
  Age: 40 Year
  Sex: Male
  Weight: 90 kg

DRUGS (6)
  1. VALPROIC ACID [Suspect]
     Indication: NEURALGIA
     Route: 048
     Dates: start: 20120128, end: 20130104
  2. PREGABALIN [Concomitant]
     Indication: PAIN
     Dosage: STARTED MORE THAN 6 MONTHS AGO AND TREATMENT ONGOING
     Route: 048
  3. PARACETAMOL [Concomitant]
     Indication: PAIN
     Dosage: STARTED MORE THAN 6 MONTHS AGO AND TREATMENT ONGOING
     Route: 048
  4. OXYNORM [Concomitant]
     Indication: PAIN
     Dosage: STARTED MORE THAN 6 MONTHS AGO AND TREATMENT ONGOING
     Route: 058
  5. BACLOFEN [Concomitant]
     Indication: MUSCLE SPASMS
     Dosage: STARTED MORE THAN 6 MONTHS AGO AND TREATMENT ONGOING
     Route: 048
  6. DIAZEPAM [Concomitant]
     Indication: MUSCLE SPASMS
     Dosage: STARTED MORE THAN 6 MONTHS AGO AND TREATMENT ONGOING
     Route: 048

REACTIONS (2)
  - Neutropenia [Recovering/Resolving]
  - Sepsis [Recovering/Resolving]
